FAERS Safety Report 24587999 (Version 2)
Quarter: 2024Q4

REPORT INFORMATION
  Report Type: Spontaneous
  Country: FR (occurrence: FR)
  Receive Date: 20241107
  Receipt Date: 20241115
  Transmission Date: 20250115
  Serious: Yes (Hospitalization)
  Sender: EMD SERONO INC
  Company Number: None

PATIENT
  Age: 39 Year
  Sex: Female

DRUGS (3)
  1. CHORIOGONADOTROPIN ALFA [Suspect]
     Active Substance: CHORIOGONADOTROPIN ALFA
     Indication: Ovarian hyperstimulation syndrome
     Route: 058
     Dates: start: 20240918, end: 20240926
  2. UTROGESTAN [Suspect]
     Active Substance: PROGESTERONE
     Indication: Ovarian hyperstimulation syndrome
     Dosage: ORAL OR VAGINAL SOFT CAPSULES
     Route: 058
     Dates: start: 20240918, end: 20240926
  3. FOLIC ACID [Concomitant]
     Active Substance: FOLIC ACID
     Indication: Renal artery stenosis

REACTIONS (1)
  - Colitis [Recovering/Resolving]

NARRATIVE: CASE EVENT DATE: 20241010
